FAERS Safety Report 5174410-1 (Version None)
Quarter: 2006Q4

REPORT INFORMATION
  Report Type: 
  Country: None (occurrence: None)
  Receive Date: 20061214
  Receipt Date: 20061026
  Transmission Date: 20070319
  Serious: Yes (Life-Threatening)
  Sender: FDA-Public Use
  Company Number: TN-SANOFI-SYNTHELABO-A01200609110

PATIENT
  Sex: Male
  Weight: 83 kg

DRUGS (2)
  1. ELOXATIN [Suspect]
     Indication: COLORECTAL CANCER RECURRENT
     Dosage: 170 MG/2W
     Route: 042
     Dates: start: 20061026, end: 20061026
  2. FOLINATE CALCIUM [Concomitant]
     Indication: COLORECTAL CANCER RECURRENT
     Route: 042
     Dates: start: 20061026, end: 20061026

REACTIONS (4)
  - HYPERHIDROSIS [None]
  - HYPOTENSION [None]
  - PARAESTHESIA [None]
  - SHOCK [None]
